FAERS Safety Report 19121811 (Version 1)
Quarter: 2021Q2

REPORT INFORMATION
  Report Type: Spontaneous
  Country: PE (occurrence: PE)
  Receive Date: 20210412
  Receipt Date: 20210412
  Transmission Date: 20210717
  Serious: No
  Sender: FDA-Public Use
  Company Number: None

PATIENT
  Age: 44 Year
  Sex: Male
  Weight: 88 kg

DRUGS (1)
  1. FONASTERIN (FINASTERIDE) [Suspect]
     Active Substance: FINASTERIDE
     Indication: ALOPECIA
     Route: 048
     Dates: start: 20200109, end: 20201010

REACTIONS (4)
  - Erectile dysfunction [None]
  - Libido decreased [None]
  - Hypotonia [None]
  - Penis disorder [None]

NARRATIVE: CASE EVENT DATE: 20201010
